FAERS Safety Report 19573314 (Version 1)
Quarter: 2021Q3

REPORT INFORMATION
  Report Type: Spontaneous
  Country: IT (occurrence: IT)
  Receive Date: 20210717
  Receipt Date: 20210717
  Transmission Date: 20211014
  Serious: Yes (Death, Other)
  Sender: FDA-Public Use
  Company Number: IT-ABBVIE-21K-083-3995786-00

PATIENT

DRUGS (2)
  1. IMBRUVICA [Suspect]
     Active Substance: IBRUTINIB
     Indication: CHRONIC LYMPHOCYTIC LEUKAEMIA
     Route: 048
  2. RITUXIMAB. [Suspect]
     Active Substance: RITUXIMAB
     Indication: CHRONIC LYMPHOCYTIC LEUKAEMIA
     Route: 065

REACTIONS (13)
  - Mycobacterial infection [Unknown]
  - Aspergillus infection [Fatal]
  - COVID-19 pneumonia [Fatal]
  - Cytomegalovirus infection [Unknown]
  - Hepatitis B reactivation [Unknown]
  - Pneumocystis jirovecii pneumonia [Unknown]
  - Viral infection [Unknown]
  - Leukoencephalopathy [Fatal]
  - Neoplasm malignant [Unknown]
  - Cryptococcosis [Unknown]
  - Varicella zoster virus infection [Unknown]
  - Pneumonia [Unknown]
  - Atrial fibrillation [Unknown]
